FAERS Safety Report 23946090 (Version 1)
Quarter: 2024Q2

REPORT INFORMATION
  Report Type: Spontaneous
  Country: JP (occurrence: JP)
  Receive Date: 20240606
  Receipt Date: 20240606
  Transmission Date: 20240716
  Serious: Yes (Hospitalization, Other)
  Sender: FDA-Public Use
  Company Number: JP-BEH-2024173256

PATIENT
  Sex: Female

DRUGS (2)
  1. PRIVIGEN [Suspect]
     Active Substance: HUMAN IMMUNOGLOBULIN G
     Indication: Product used for unknown indication
     Route: 064
  2. PREDNISOLONE [Suspect]
     Active Substance: PREDNISOLONE

REACTIONS (2)
  - Respiratory disorder [Unknown]
  - Foetal exposure during pregnancy [Unknown]
